FAERS Safety Report 5734971-8 (Version None)
Quarter: 2008Q2

REPORT INFORMATION
  Report Type: 
  Country: None (occurrence: None)
  Receive Date: 20080512
  Receipt Date: 20080429
  Transmission Date: 20081010
  Serious: Yes (Other)
  Sender: FDA-Public Use
  Company Number: US-BAYER-200810478BCC

PATIENT
  Age: 80 Year
  Sex: Female
  Weight: 50 kg

DRUGS (5)
  1. ALEVE (CAPLET) [Suspect]
     Indication: ARTHRALGIA
     Route: 048
     Dates: start: 20070201, end: 20071101
  2. ALEVE (CAPLET) [Suspect]
     Route: 048
     Dates: start: 20071101
  3. ONE A DAY VITAMINS [Suspect]
     Route: 048
  4. LOVASTATIN [Concomitant]
  5. ATENOLOL [Concomitant]

REACTIONS (1)
  - BLOOD PRESSURE INCREASED [None]
